FAERS Safety Report 26146873 (Version 1)
Quarter: 2025Q4

REPORT INFORMATION
  Report Type: Spontaneous
  Country: US (occurrence: US)
  Receive Date: 20251211
  Receipt Date: 20251211
  Transmission Date: 20260118
  Serious: No
  Sender: NANJING KING-FRIEND BIOCHEMICAL PHARMACEUTICAL
  Company Number: US-NKFPHARMA-2025MPSPO00412

PATIENT
  Sex: Male

DRUGS (1)
  1. LIRAGLUTIDE [Suspect]
     Active Substance: LIRAGLUTIDE
     Indication: Product used for unknown indication
     Route: 065

REACTIONS (4)
  - Blood glucose increased [Unknown]
  - Product dose omission issue [Unknown]
  - Device malfunction [Unknown]
  - Device failure [Unknown]
